FAERS Safety Report 9719316 (Version 1)
Quarter: 2013Q4

REPORT INFORMATION
  Report Type: Spontaneous
  Country: US (occurrence: US)
  Receive Date: 20131127
  Receipt Date: 20131127
  Transmission Date: 20140711
  Serious: Yes (Other)
  Sender: FDA-Public Use
  Company Number: US-PFIZER INC-2013336670

PATIENT
  Age: 61 Year
  Sex: Female

DRUGS (1)
  1. XELJANZ [Suspect]
     Dosage: 1 DF, 2X/DAY (1 PO BID)
     Route: 048
     Dates: start: 20131008, end: 20131108

REACTIONS (2)
  - Suicidal ideation [Unknown]
  - Crying [Unknown]
